FAERS Safety Report 12999972 (Version 3)
Quarter: 2017Q1

REPORT INFORMATION
  Report Type: Spontaneous
  Country: JP (occurrence: JP)
  Receive Date: 20161205
  Receipt Date: 20170109
  Transmission Date: 20170428
  Serious: Yes (Other)
  Sender: FDA-Public Use
  Company Number: JP-TEVA-201611_00000016

PATIENT
  Age: 74 Year
  Sex: Male
  Weight: 61 kg

DRUGS (5)
  1. VELCADE [Suspect]
     Active Substance: BORTEZOMIB
     Indication: MANTLE CELL LYMPHOMA RECURRENT
     Dosage: 2 MG/M2 DAILY;
     Route: 058
     Dates: start: 20151125, end: 20151205
  2. PREDNISOLONE TABLETS 5MG. [Suspect]
     Active Substance: PREDNISOLONE
     Indication: MANTLE CELL LYMPHOMA RECURRENT
     Route: 065
  3. ENDOXAN [Suspect]
     Active Substance: CYCLOPHOSPHAMIDE
     Indication: MANTLE CELL LYMPHOMA RECURRENT
     Route: 065
  4. ADRIACIN [Suspect]
     Active Substance: DOXORUBICIN HYDROCHLORIDE
     Indication: MANTLE CELL LYMPHOMA RECURRENT
     Route: 065
  5. RITUXAN [Suspect]
     Active Substance: RITUXIMAB
     Indication: MANTLE CELL LYMPHOMA RECURRENT
     Route: 065

REACTIONS (2)
  - Herpes zoster [Recovered/Resolved]
  - Ileus paralytic [Recovering/Resolving]

NARRATIVE: CASE EVENT DATE: 20151208
